FAERS Safety Report 9580024 (Version 1)
Quarter: 2013Q3

REPORT INFORMATION
  Report Type: Spontaneous
  Country: US (occurrence: None)
  Receive Date: 20130930
  Receipt Date: 20130930
  Transmission Date: 20140515
  Serious: Yes (Disabling)
  Sender: FDA-Public Use
  Company Number: None

PATIENT
  Age: 61 Year
  Sex: Female
  Weight: 44.45 kg

DRUGS (1)
  1. LEVAQUIN [Suspect]
     Indication: OSTEOMYELITIS
     Route: 048
     Dates: start: 20130911, end: 20130920

REACTIONS (5)
  - Musculoskeletal discomfort [None]
  - Gait disturbance [None]
  - Joint range of motion decreased [None]
  - Arthralgia [None]
  - Muscular weakness [None]
